FAERS Safety Report 9377814 (Version 1)
Quarter: 2013Q3

REPORT INFORMATION
  Report Type: Spontaneous
  Country: ES (occurrence: ES)
  Receive Date: 20130701
  Receipt Date: 20130701
  Transmission Date: 20140515
  Serious: Yes (Other)
  Sender: FDA-Public Use
  Company Number: PHHY2013ES066623

PATIENT
  Age: 81 Year
  Sex: Female

DRUGS (2)
  1. EUCREAS [Suspect]
     Dosage: 1 DF (METF 1000 MG, VILD 50 MG), QD
     Route: 048
     Dates: start: 20110101, end: 20110628
  2. SIMVASTATIN [Suspect]
     Dosage: 40 MG, QD
     Route: 048
     Dates: start: 20110101, end: 20110628

REACTIONS (1)
  - Hepatitis toxic [Recovered/Resolved]
